FAERS Safety Report 6145618-3 (Version None)
Quarter: 2009Q2

REPORT INFORMATION
  Report Type: 
  Country: None (occurrence: None)
  Receive Date: 20090407
  Receipt Date: 20090401
  Transmission Date: 20091009
  Serious: Yes (Other)
  Sender: FDA-Public Use
  Company Number: GB-WYE-G03435009

PATIENT
  Sex: Male

DRUGS (2)
  1. EFFEXOR [Suspect]
     Route: 048
  2. EFFEXOR [Suspect]
     Dosage: UNKNOWN
     Route: 048

REACTIONS (2)
  - AGGRESSION [None]
  - DRUG WITHDRAWAL SYNDROME [None]
